FAERS Safety Report 7133044-X (Version None)
Quarter: 2010Q4

REPORT INFORMATION
  Report Type: 
  Country: None (occurrence: None)
  Receive Date: 20101202
  Receipt Date: 20101123
  Transmission Date: 20110411
  Serious: Yes (Hospitalization)
  Sender: FDA-Public Use
  Company Number: A0894824A

PATIENT
  Age: 71 Year
  Sex: Male

DRUGS (2)
  1. DUTASTERIDE [Suspect]
     Indication: PROSTATE CANCER
     Dosage: 3.5MG PER DAY
     Route: 048
     Dates: start: 20080717
  2. CASODEX [Suspect]
     Indication: PROSTATE CANCER
     Dosage: 50MG PER DAY
     Route: 048
     Dates: start: 20080717, end: 20100331

REACTIONS (1)
  - CEREBROVASCULAR ACCIDENT [None]
